FAERS Safety Report 9603550 (Version 1)
Quarter: 2013Q4

REPORT INFORMATION
  Report Type: Spontaneous
  Country: US (occurrence: US)
  Receive Date: 20131007
  Receipt Date: 20131007
  Transmission Date: 20140711
  Serious: No
  Sender: FDA-Public Use
  Company Number: US-PFIZER INC-2013283504

PATIENT
  Age: 40 Year
  Sex: Female

DRUGS (1)
  1. VIRACEPT [Suspect]
     Dosage: 500 MG, UNK
     Route: 048
     Dates: start: 2005, end: 2005

REACTIONS (2)
  - Bone pain [Recovered/Resolved]
  - Headache [Recovered/Resolved]
